FAERS Safety Report 12081275 (Version 1)
Quarter: 2016Q1

REPORT INFORMATION
  Report Type: Spontaneous
  Country: DE (occurrence: DE)
  Receive Date: 20160216
  Receipt Date: 20160216
  Transmission Date: 20160526
  Serious: Yes (Hospitalization)
  Sender: FDA-Public Use
  Company Number: DE-BRACCO-002113

PATIENT
  Sex: Male

DRUGS (1)
  1. GADOLINIUM [Suspect]
     Active Substance: GADOLINIUM
     Indication: NUCLEAR MAGNETIC RESONANCE IMAGING
     Dates: start: 20150708, end: 20150708

REACTIONS (6)
  - Musculoskeletal stiffness [Unknown]
  - Exercise tolerance decreased [Unknown]
  - Skin discomfort [Unknown]
  - Nephrogenic systemic fibrosis [Unknown]
  - Somnolence [Unknown]
  - Myalgia [Unknown]

NARRATIVE: CASE EVENT DATE: 20150708
